FAERS Safety Report 25334053 (Version 2)
Quarter: 2025Q3

REPORT INFORMATION
  Report Type: Spontaneous
  Country: US (occurrence: US)
  Receive Date: 20250520
  Receipt Date: 20250725
  Transmission Date: 20251020
  Serious: No
  Sender: ROCHE
  Company Number: US-ROCHE-10000284410

PATIENT
  Sex: Female

DRUGS (1)
  1. RITUXAN [Suspect]
     Active Substance: RITUXIMAB
     Indication: Rheumatoid arthritis
     Dosage: STRENGTH: 10 MG/ML?50ML/VIAL?AT WEEKS 0 AND 2, EVERY 6 MONTHS
     Route: 042
     Dates: start: 202003

REACTIONS (2)
  - Pain [Unknown]
  - Oedema [Unknown]
